FAERS Safety Report 12937615 (Version 2)
Quarter: 2016Q4

REPORT INFORMATION
  Report Type: Report from Study
  Country: CA (occurrence: CA)
  Receive Date: 20161114
  Receipt Date: 20161117
  Transmission Date: 20170207
  Serious: Yes (Hospitalization, Other)
  Sender: FDA-Public Use
  Company Number: CA-TAKEDA-2016TUS020320

PATIENT
  Age: 27 Year
  Sex: Male

DRUGS (4)
  1. ZOFRAN [Concomitant]
     Active Substance: ONDANSETRON HYDROCHLORIDE
     Dosage: UNK
     Dates: start: 2015
  2. NEXIUM [Concomitant]
     Active Substance: ESOMEPRAZOLE MAGNESIUM
     Dosage: 40 MG, UNK
  3. VEDOLIZUMAB [Suspect]
     Active Substance: VEDOLIZUMAB
     Indication: CROHN^S DISEASE
     Dosage: 300 MG, Q4WEEKS
     Route: 042
     Dates: start: 20160812
  4. IMURAN [Concomitant]
     Active Substance: AZATHIOPRINE
     Dosage: 200 MG, QD
     Route: 059
     Dates: start: 2005

REACTIONS (4)
  - Fall [Unknown]
  - Heart rate increased [Not Recovered/Not Resolved]
  - Off label use [Unknown]
  - Tibia fracture [Unknown]

NARRATIVE: CASE EVENT DATE: 20160812
